FAERS Safety Report 14432306 (Version 1)
Quarter: 2018Q1

REPORT INFORMATION
  Report Type: Spontaneous
  Country: SE (occurrence: SE)
  Receive Date: 20180124
  Receipt Date: 20180124
  Transmission Date: 20180509
  Serious: Yes (Other)
  Sender: FDA-Public Use
  Company Number: SE-PFIZER INC-2018029585

PATIENT
  Age: 54 Year
  Sex: Female

DRUGS (5)
  1. BOTOX [Concomitant]
     Active Substance: ONABOTULINUMTOXINA
     Indication: MIGRAINE
     Dosage: EVERY 12TH WEEK
  2. TROMBYL [Concomitant]
     Active Substance: ASPIRIN
     Dosage: UNK
  3. RELPAX [Suspect]
     Active Substance: ELETRIPTAN HYDROBROMIDE
     Indication: MIGRAINE
     Dosage: 20 MG, AS NEEDED
     Route: 048
     Dates: start: 20160920, end: 20170305
  4. TOPAMAX [Concomitant]
     Active Substance: TOPIRAMATE
     Dosage: UNK
  5. ZOMIG [Concomitant]
     Active Substance: ZOLMITRIPTAN
     Dosage: UNK, AS NEEDED

REACTIONS (2)
  - Nausea [Recovered/Resolved]
  - Vomiting projectile [Recovered/Resolved]

NARRATIVE: CASE EVENT DATE: 20170208
